FAERS Safety Report 15925000 (Version 2)
Quarter: 2019Q1

REPORT INFORMATION
  Report Type: Report from Study
  Country: US (occurrence: US)
  Receive Date: 20190206
  Receipt Date: 20190226
  Transmission Date: 20190417
  Serious: Yes (Life-Threatening, Hospitalization, Other)
  Sender: FDA-Public Use
  Company Number: PHHY2019US025742

PATIENT
  Age: 20 Year
  Sex: Male
  Weight: 73.5 kg

DRUGS (3)
  1. SCOPOLAMINE [Concomitant]
     Active Substance: SCOPOLAMINE
     Indication: PRODUCT USED FOR UNKNOWN INDICATION
     Route: 065
  2. KYMRIAH [Suspect]
     Active Substance: TISAGENLECLEUCEL
     Indication: ACUTE LYMPHOCYTIC LEUKAEMIA
     Dosage: 0.481E9 CELL COUNT
     Route: 065
     Dates: start: 20190115
  3. HYDROXYZINE [Concomitant]
     Active Substance: HYDROXYZINE HYDROCHLORIDE
     Indication: PRODUCT USED FOR UNKNOWN INDICATION
     Route: 065

REACTIONS (11)
  - Body temperature increased [Unknown]
  - Heart rate increased [Unknown]
  - Leukoencephalopathy [Unknown]
  - Hallucination, visual [Unknown]
  - Respiratory rate increased [Unknown]
  - Delirium [Unknown]
  - Neurotoxicity [Not Recovered/Not Resolved]
  - Leukaemia [Not Recovered/Not Resolved]
  - Cytokine release syndrome [Not Recovered/Not Resolved]
  - Pupil fixed [Unknown]
  - Serum ferritin increased [Unknown]

NARRATIVE: CASE EVENT DATE: 20190116
